FAERS Safety Report 5233809-5 (Version None)
Quarter: 2007Q1

REPORT INFORMATION
  Report Type: 
  Country: None (occurrence: None)
  Receive Date: 20061208
  Receipt Date: 20060221
  Transmission Date: 20070707
  Serious: Yes (Other)
  Sender: FDA-Public Use
  Company Number: 2006UW02960

PATIENT
  Age: 64 Year
  Sex: Male
  Weight: 95.254 kg

DRUGS (8)
  1. CRESTOR [Suspect]
     Indication: BLOOD CHOLESTEROL INCREASED
     Dosage: 10 MG PO
     Route: 048
     Dates: start: 20050101
  2. BETA BLOCKERS [Concomitant]
  3. ZESTRIL [Concomitant]
  4. DIURETIC [Concomitant]
  5. PREVACID [Concomitant]
  6. POTASSIUM ACETATE [Concomitant]
  7. PLAVIX [Concomitant]
  8. ASPIRIN [Concomitant]

REACTIONS (1)
  - HYPOAESTHESIA [None]
